FAERS Safety Report 25664234 (Version 1)
Quarter: 2025Q3

REPORT INFORMATION
  Report Type: Report from Study
  Country: US (occurrence: US)
  Receive Date: 20250811
  Receipt Date: 20250811
  Transmission Date: 20251020
  Serious: No
  Sender: SUNOVION
  Company Number: US-SMPA-2025SPA009930

PATIENT
  Age: 71 Year
  Sex: Male

DRUGS (3)
  1. ORGOVYX [Suspect]
     Active Substance: RELUGOLIX
     Indication: Prostate cancer
     Route: 048
  2. ORGOVYX [Suspect]
     Active Substance: RELUGOLIX
     Route: 048
  3. XTANDI [Concomitant]
     Active Substance: ENZALUTAMIDE

REACTIONS (2)
  - Blood calcium decreased [Unknown]
  - Tooth disorder [Unknown]
